FAERS Safety Report 8897220 (Version 1)
Quarter: 2012Q4

REPORT INFORMATION
  Report Type: 
  Country: US (occurrence: US)
  Receive Date: 20121108
  Receipt Date: 20121108
  Transmission Date: 20130627
  Serious: No
  Sender: FDA-Public Use
  Company Number: US-AMGEN-USASP2012012103

PATIENT
  Sex: Female
  Weight: 64.4 kg

DRUGS (9)
  1. ENBREL [Suspect]
     Indication: PRODUCT USED FOR UNKNOWN INDICATION
     Dosage: 50 mg, qwk
     Route: 058
  2. AMLODIPINE [Concomitant]
     Dosage: 2.5 mg, UNK
  3. MELOXICAM [Concomitant]
     Dosage: 7.5 mg, UNK
  4. FUROSEMIDE [Concomitant]
     Dosage: 20 mg, UNK
  5. METHOTREXATE [Concomitant]
     Dosage: 2.5 mg, UNK
  6. MONOPRIL [Concomitant]
     Dosage: 10 mg, UNK
  7. VITAMIN D /00107901/ [Concomitant]
     Dosage: 400 IU, UNK
  8. CALCIUM [Concomitant]
  9. FOLIC ACID [Concomitant]

REACTIONS (1)
  - Sinusitis [Unknown]
